FAERS Safety Report 6518883-8 (Version None)
Quarter: 2009Q4

REPORT INFORMATION
  Report Type: 
  Country: None (occurrence: None)
  Receive Date: 20091228
  Receipt Date: 20091216
  Transmission Date: 20100525
  Serious: Yes (Other)
  Sender: FDA-Public Use
  Company Number: PHHY2009AU55589

PATIENT
  Sex: Male

DRUGS (2)
  1. EXFORGE [Suspect]
     Indication: HYPERTENSION
     Dosage: 160/5 MG
  2. EXFORGE [Suspect]
     Dosage: 160/10 MG
     Route: 048
     Dates: start: 20090831

REACTIONS (3)
  - AORTIC ANEURYSM [None]
  - DIZZINESS [None]
  - STENT PLACEMENT [None]
